FAERS Safety Report 18680585 (Version 2)
Quarter: 2021Q1

REPORT INFORMATION
  Report Type: Report from Study
  Country: None (occurrence: US)
  Receive Date: 20201230
  Receipt Date: 20210209
  Transmission Date: 20210419
  Serious: Yes (Other)
  Sender: FDA-Public Use
  Company Number: US-ABBVIE-20K-163-3708925-00

PATIENT
  Sex: Female
  Weight: 93.52 kg

DRUGS (3)
  1. SKYRIZI [Suspect]
     Active Substance: RISANKIZUMAB-RZAA
     Dosage: EARLY LAST YEAR
     Route: 058
     Dates: start: 2020
  2. SKYRIZI [Suspect]
     Active Substance: RISANKIZUMAB-RZAA
     Dosage: EARLY LAST YEAR
     Route: 058
     Dates: start: 2020, end: 2020
  3. SKYRIZI [Suspect]
     Active Substance: RISANKIZUMAB-RZAA
     Indication: PSORIASIS
     Dosage: EARLY LAST YEAR
     Route: 058
     Dates: start: 2020, end: 2020

REACTIONS (3)
  - Pancreatic carcinoma stage II [Not Recovered/Not Resolved]
  - Pancreatic disorder [Unknown]
  - Cellulitis [Recovering/Resolving]

NARRATIVE: CASE EVENT DATE: 2020
